FAERS Safety Report 10792520 (Version 1)
Quarter: 2015Q1

REPORT INFORMATION
  Report Type: Spontaneous
  Country: US (occurrence: US)
  Receive Date: 20150213
  Receipt Date: 20150213
  Transmission Date: 20150721
  Serious: Yes (Other)
  Sender: FDA-Public Use
  Company Number: US-AMGEN-USASP2015012056

PATIENT
  Age: 73 Year
  Sex: Female

DRUGS (17)
  1. DIGOXIN. [Concomitant]
     Active Substance: DIGOXIN
  2. PROCARDIA [Concomitant]
     Active Substance: NIFEDIPINE
  3. HYDRALAZINE [Concomitant]
     Active Substance: HYDRALAZINE HYDROCHLORIDE
  4. TRAMADOL [Concomitant]
     Active Substance: TRAMADOL
  5. PROCRIT [Suspect]
     Active Substance: ERYTHROPOIETIN
     Indication: ANAEMIA
     Dosage: UNK
     Route: 065
  6. SYNTHROID [Concomitant]
     Active Substance: LEVOTHYROXINE SODIUM
  7. COREG [Concomitant]
     Active Substance: CARVEDILOL
  8. PRILOSEC [Concomitant]
     Active Substance: OMEPRAZOLE MAGNESIUM
  9. ATIVAN [Concomitant]
     Active Substance: LORAZEPAM
  10. CARDURA [Concomitant]
     Active Substance: DOXAZOSIN MESYLATE
  11. FERROUS SULFATE [Concomitant]
     Active Substance: FERROUS SULFATE\FERROUS SULFATE, DRIED
  12. PROLIA [Suspect]
     Active Substance: DENOSUMAB
     Indication: PRODUCT USED FOR UNKNOWN INDICATION
     Dosage: UNK UNK, UNK
     Route: 065
     Dates: start: 20150113
  13. PLAVIX [Concomitant]
     Active Substance: CLOPIDOGREL BISULFATE
  14. ARIMIDEX [Concomitant]
     Active Substance: ANASTROZOLE
  15. CELEXA [Concomitant]
     Active Substance: CITALOPRAM HYDROBROMIDE
  16. LASIX [Concomitant]
     Active Substance: FUROSEMIDE
  17. FLEXERIL [Concomitant]
     Active Substance: CYCLOBENZAPRINE HYDROCHLORIDE

REACTIONS (10)
  - Hypocalcaemia [Unknown]
  - Arthropathy [Unknown]
  - Pain in extremity [Unknown]
  - Anaemia [Unknown]
  - Arthralgia [Unknown]
  - Musculoskeletal pain [Unknown]
  - Pain [Unknown]
  - Peripheral swelling [Unknown]
  - Myalgia [Unknown]
  - Neck pain [Unknown]

NARRATIVE: CASE EVENT DATE: 201501
